FAERS Safety Report 8785264 (Version 1)
Quarter: 2012Q4

REPORT INFORMATION
  Report Type: 
  Country: US (occurrence: US)
  Receive Date: 20120914
  Receipt Date: 20120914
  Transmission Date: 20130627
  Serious: Yes (Hospitalization, Other)
  Sender: FDA-Public Use
  Company Number: US-SANOFI-AVENTIS-2012SA064670

PATIENT
  Age: 78 Year
  Sex: Female

DRUGS (2)
  1. GLIMEPIRIDE [Suspect]
     Indication: TYPE II DIABETES MELLITUS
     Route: 065
  2. METFORMIN [Suspect]
     Route: 065

REACTIONS (4)
  - Extrasystoles [Unknown]
  - Anaemia [Unknown]
  - Hypertension [Unknown]
  - Heart rate increased [Unknown]
